FAERS Safety Report 21830460 (Version 1)
Quarter: 2023Q1

REPORT INFORMATION
  Report Type: Spontaneous
  Country: CA (occurrence: CA)
  Receive Date: 20230106
  Receipt Date: 20230106
  Transmission Date: 20230418
  Serious: Yes (Other)
  Sender: FDA-Public Use
  Company Number: CA-GSKCCFAMERS-Case-01580529_AE-89310

PATIENT

DRUGS (2)
  1. BELANTAMAB MAFODOTIN [Suspect]
     Active Substance: BELANTAMAB MAFODOTIN
     Indication: Plasma cell myeloma
     Dosage: 127 MG TARGET
     Route: 042
     Dates: start: 20221208
  2. BELANTAMAB MAFODOTIN [Suspect]
     Active Substance: BELANTAMAB MAFODOTIN
     Dosage: 318 MG GIVEN
     Route: 042

REACTIONS (15)
  - Eye haemorrhage [Unknown]
  - Syncope [Unknown]
  - Paralysis [Unknown]
  - Intracranial pressure increased [Unknown]
  - Vision blurred [Unknown]
  - Neck pain [Unknown]
  - Diplopia [Unknown]
  - Overdose [Unknown]
  - Headache [Unknown]
  - Vomiting [Unknown]
  - Photophobia [Unknown]
  - Head injury [Unknown]
  - Altered visual depth perception [Unknown]
  - Eye movement disorder [Unknown]
  - Product dispensing error [Unknown]

NARRATIVE: CASE EVENT DATE: 20221201
